FAERS Safety Report 7927558-X (Version None)
Quarter: 2011Q4

REPORT INFORMATION
  Report Type: 
  Country: None (occurrence: None)
  Receive Date: 20111118
  Receipt Date: 20111110
  Transmission Date: 20120403
  Serious: Yes (Hospitalization)
  Sender: FDA-Public Use
  Company Number: US-ENDO PHARMACEUTICALS INC.-MSER20110049

PATIENT
  Sex: Female

DRUGS (2)
  1. MORPHINE SULFATE [Suspect]
     Indication: BACK PAIN
     Route: 048
     Dates: end: 20090101
  2. NORCO [Suspect]
     Indication: BREAKTHROUGH PAIN
     Dosage: 7.5 MG
     Route: 048
     Dates: end: 20090101

REACTIONS (1)
  - GASTROOESOPHAGEAL REFLUX DISEASE [None]
